FAERS Safety Report 23807184 (Version 1)
Quarter: 2024Q2

REPORT INFORMATION
  Report Type: Spontaneous
  Country: US (occurrence: US)
  Receive Date: 20240502
  Receipt Date: 20240502
  Transmission Date: 20240716
  Serious: No
  Sender: FDA-Public Use
  Company Number: US-RECKITT BENCKISER HEALTHCARE INT LIMITED-RB-092929-2023

PATIENT
  Sex: Female

DRUGS (1)
  1. MUCINEX DM MAXIMUM STRENGTH [Suspect]
     Active Substance: DEXTROMETHORPHAN HYDROBROMIDE\GUAIFENESIN
     Indication: Cough
     Dosage: TOOK 1 TABLET TWICE A DAY. ACCIDENTALLY TOOK TWO TABLETS AT ONCE. TOTAL AMOUNT USED: 4 TABLETS.
     Route: 048
     Dates: start: 20230501

REACTIONS (1)
  - Accidental overdose [Unknown]
